FAERS Safety Report 11040328 (Version 1)
Quarter: 2015Q2

REPORT INFORMATION
  Report Type: Report from Study
  Country: US (occurrence: US)
  Receive Date: 20150416
  Receipt Date: 20150416
  Transmission Date: 20150821
  Serious: Yes (Hospitalization)
  Sender: FDA-Public Use
  Company Number: US-ACTELION-A-NJ2015-112866

PATIENT
  Age: 45 Year
  Sex: Female

DRUGS (3)
  1. COUMADIN [Concomitant]
     Active Substance: WARFARIN SODIUM
  2. VELETRI [Suspect]
     Active Substance: EPOPROSTENOL
     Indication: PULMONARY ARTERIAL HYPERTENSION
     Dosage: 198 NG/KG, PER MIN
     Route: 042
     Dates: start: 20130826
  3. VELETRI [Suspect]
     Active Substance: EPOPROSTENOL
     Dosage: 200 NG/KG, PER MIN
     Route: 042
     Dates: start: 20130823

REACTIONS (3)
  - Thrombosis [Unknown]
  - Device occlusion [Unknown]
  - Thrombosis in device [Unknown]

NARRATIVE: CASE EVENT DATE: 20150220
